FAERS Safety Report 12771358 (Version 1)
Quarter: 2016Q3

REPORT INFORMATION
  Report Type: Spontaneous
  Country: US (occurrence: US)
  Receive Date: 20160922
  Receipt Date: 20160922
  Transmission Date: 20161109
  Serious: No
  Sender: FDA-Public Use
  Company Number: US-TARO-2016TAR00475

PATIENT
  Age: 40 Year
  Sex: Male
  Weight: 104.31 kg

DRUGS (1)
  1. LORATADINE SYRUP (LORATADINE ORAL SOLUTION USP) 5MG/5ML [Suspect]
     Active Substance: LORATADINE
     Dosage: 7 ML, ONCE
     Route: 048
     Dates: start: 20160521, end: 20160521

REACTIONS (4)
  - Throat irritation [Recovered/Resolved]
  - Dysphagia [Recovered/Resolved]
  - Product quality issue [Recovered/Resolved]
  - Off label use [Recovered/Resolved]

NARRATIVE: CASE EVENT DATE: 20160521
